FAERS Safety Report 4596894-X (Version None)
Quarter: 2005Q1

REPORT INFORMATION
  Report Type: 
  Country: None (occurrence: None)
  Receive Date: 20050228
  Receipt Date: 20050215
  Transmission Date: 20050727
  Serious: Yes (Hospitalization)
  Sender: FDA-Public Use
  Company Number: DPC-2004-00071

PATIENT
  Age: 48 Year
  Sex: Female

DRUGS (3)
  1. EVOXAC [Suspect]
     Indication: SJOGREN'S SYNDROME
     Dosage: SEE IMAGE
     Route: 048
     Dates: start: 20031023, end: 20040401
  2. EVOXAC [Suspect]
     Indication: SJOGREN'S SYNDROME
     Dosage: SEE IMAGE
     Route: 048
     Dates: start: 20040401, end: 20040405
  3. PLAQUENIL (HYDROXYCHLOROQUINE SULFATE) (HYDROXYCHLOROQUINE SULFATE) [Concomitant]

REACTIONS (3)
  - LUNG NEOPLASM MALIGNANT [None]
  - LYMPHADENOPATHY [None]
  - PLEURAL EFFUSION [None]
